FAERS Safety Report 5040760-2 (Version None)
Quarter: 2006Q2

REPORT INFORMATION
  Report Type: 
  Country: None (occurrence: None)
  Receive Date: 20060630
  Receipt Date: 20060630
  Transmission Date: 20061013
  Serious: Yes (Life-Threatening, Hospitalization)
  Sender: FDA-Public Use
  Company Number: None

PATIENT
  Age: 88 Year
  Sex: Female
  Weight: 76 kg

DRUGS (16)
  1. COUMADIN [Suspect]
     Indication: ATRIAL FIBRILLATION
     Dosage: 2 MG   DAILY   PO
     Route: 048
  2. COUMADIN [Suspect]
     Indication: DEEP VEIN THROMBOSIS
     Dosage: 2 MG   DAILY   PO
     Route: 048
  3. COUMADIN [Suspect]
     Indication: PULMONARY EMBOLISM
     Dosage: 2 MG   DAILY   PO
     Route: 048
  4. COREG [Concomitant]
  5. BUMEX [Concomitant]
  6. NORVASC [Concomitant]
  7. PROTONIX [Concomitant]
  8. SYNTHROID [Concomitant]
  9. DIGOXIN [Concomitant]
  10. LIPITOR [Concomitant]
  11. GLUCOSAMINE [Concomitant]
  12. BENICAR [Concomitant]
  13. REMERON [Concomitant]
  14. FEROSOL [Concomitant]
  15. ASPIRIN [Concomitant]
  16. XANAX [Concomitant]

REACTIONS (5)
  - ARTHRALGIA [None]
  - DRUG TOXICITY [None]
  - HAEMATOCHEZIA [None]
  - INTERNATIONAL NORMALISED RATIO INCREASED [None]
  - RECTAL HAEMORRHAGE [None]
